FAERS Safety Report 16974418 (Version 1)
Quarter: 2019Q4

REPORT INFORMATION
  Report Type: Spontaneous
  Country: GB (occurrence: GB)
  Receive Date: 20191030
  Receipt Date: 20191030
  Transmission Date: 20200122
  Serious: Yes (Disabling, Other)
  Sender: FDA-Public Use
  Company Number: GB-SA-2019SA295252

PATIENT
  Age: 69 Year
  Sex: Male

DRUGS (4)
  1. FEXOFENADINE HYDROCHLORIDE. [Suspect]
     Active Substance: FEXOFENADINE HYDROCHLORIDE
     Indication: URTICARIA
     Dosage: 180 MG, QD
     Route: 065
     Dates: start: 20191004, end: 20191005
  2. DERMOVATE [Concomitant]
     Active Substance: CLOBETASOL
     Dosage: APPLY SPARINGLY
     Route: 065
     Dates: start: 20190923
  3. MENTHOL. [Concomitant]
     Active Substance: MENTHOL
     Dosage: AS DIRECTED
     Route: 065
     Dates: start: 20191004
  4. FLUCLOXACILLIN [Concomitant]
     Active Substance: FLUCLOXACILLIN
     Dosage: 2000 MG, QD
     Route: 065
     Dates: start: 20190923

REACTIONS (3)
  - Swollen tongue [Recovering/Resolving]
  - Lip swelling [Recovering/Resolving]
  - Pharyngeal swelling [Recovering/Resolving]

NARRATIVE: CASE EVENT DATE: 20191005
